FAERS Safety Report 6004758-X (Version None)
Quarter: 2008Q4

REPORT INFORMATION
  Report Type: 
  Country: None (occurrence: None)
  Receive Date: 20081216
  Receipt Date: 20081208
  Transmission Date: 20090506
  Serious: Yes (Death)
  Sender: FDA-Public Use
  Company Number: US-PFIZER INC-2008151318

PATIENT
  Sex: Female

DRUGS (5)
  1. XANAX [Suspect]
     Indication: ANXIETY
     Dates: end: 20080701
  2. AROMASIN [Suspect]
     Indication: PROPHYLAXIS
     Dosage: 25 MG, UNK
  3. LYRICA [Suspect]
     Indication: NEUROPATHY PERIPHERAL
  4. ZOLOFT [Suspect]
     Indication: ANXIETY
     Dosage: 50 MG, UNK
  5. ALL OTHER THERAPEUTIC PRODUCTS [Concomitant]

REACTIONS (1)
  - OVARIAN CANCER [None]
